FAERS Safety Report 19918158 (Version 1)
Quarter: 2021Q4

REPORT INFORMATION
  Report Type: Spontaneous
  Country: US (occurrence: US)
  Receive Date: 20211005
  Receipt Date: 20211005
  Transmission Date: 20220303
  Serious: No
  Sender: FDA-Public Use
  Company Number: None

PATIENT
  Age: 75 Year
  Sex: Male
  Weight: 68.1 kg

DRUGS (11)
  1. ERLEADA [Suspect]
     Active Substance: APALUTAMIDE
     Indication: Prostate cancer
     Route: 048
  2. ATORVASTATIN [Concomitant]
     Active Substance: ATORVASTATIN
  3. CASODEX [Concomitant]
     Active Substance: BICALUTAMIDE
  4. CALCIUM CARBONATE [Concomitant]
     Active Substance: CALCIUM CARBONATE
  5. XGEVA [Concomitant]
     Active Substance: DENOSUMAB
  6. VITAMIN D [Concomitant]
     Active Substance: VITAMIN D NOS
  7. LEUPROLIDE [Concomitant]
     Active Substance: LEUPROLIDE
  8. LISINOPRIL [Concomitant]
     Active Substance: LISINOPRIL
  9. VIAGRA [Concomitant]
     Active Substance: SILDENAFIL CITRATE
  10. FLOMAX [Concomitant]
     Active Substance: TAMSULOSIN HYDROCHLORIDE
  11. VALACYCLOVIR [Concomitant]
     Active Substance: VALACYCLOVIR HYDROCHLORIDE

REACTIONS (2)
  - Disease progression [None]
  - Prostatic specific antigen increased [None]

NARRATIVE: CASE EVENT DATE: 20211004
